FAERS Safety Report 22360086 (Version 2)
Quarter: 2025Q1

REPORT INFORMATION
  Report Type: Spontaneous
  Country: US (occurrence: US)
  Receive Date: 20230524
  Receipt Date: 20250117
  Transmission Date: 20250409
  Serious: Yes (Other)
  Sender: LUPIN
  Company Number: US-LUPIN PHARMACEUTICALS INC.-2023-03876

PATIENT

DRUGS (3)
  1. ALBUTEROL SULFATE [Suspect]
     Active Substance: ALBUTEROL SULFATE
     Indication: Asthma
     Dates: start: 20230403
  2. ALBUTEROL SULFATE [Suspect]
     Active Substance: ALBUTEROL SULFATE
     Indication: Chronic obstructive pulmonary disease
  3. ASPIRIN [Concomitant]
     Active Substance: ASPIRIN
     Indication: Product used for unknown indication
     Route: 065

REACTIONS (12)
  - Hypoxia [Unknown]
  - Device delivery system issue [Unknown]
  - Device malfunction [Unknown]
  - Device deposit issue [Unknown]
  - Dizziness [Unknown]
  - Fall [Unknown]
  - Confusional state [Unknown]
  - Cyanosis [Unknown]
  - Panic attack [Unknown]
  - Drug dose omission by device [Unknown]
  - Product packaging issue [Unknown]
  - Suspected counterfeit product [Unknown]
